FAERS Safety Report 4718220-5 (Version None)
Quarter: 2005Q3

REPORT INFORMATION
  Report Type: 
  Country: None (occurrence: None)
  Receive Date: 20050718
  Receipt Date: 20050120
  Transmission Date: 20060218
  Serious: No
  Sender: FDA-Public Use
  Company Number: 2005000157

PATIENT
  Age: 67 Year
  Sex: Female
  Weight: 70.3075 kg

DRUGS (2)
  1. TARCEVA [Suspect]
     Indication: PANCREATIC CARCINOMA
     Dosage: 150 MG (QD), ORAL   4 WEEKS AGO
     Route: 048
  2. TARCEVA [Suspect]
     Indication: PANCREATIC CARCINOMA
     Dosage: (2 TAB PRE CHEMO AND 2 TABS POST CHEMO)

REACTIONS (3)
  - BACK PAIN [None]
  - RASH [None]
  - RENAL PAIN [None]
